FAERS Safety Report 8014264-9 (Version None)
Quarter: 2011Q4

REPORT INFORMATION
  Report Type: 
  Country: None (occurrence: None)
  Receive Date: 20111229
  Receipt Date: 20111222
  Transmission Date: 20120403
  Serious: Yes (Other)
  Sender: FDA-Public Use
  Company Number: BR-VIIV HEALTHCARE LIMITED-B0766037A

PATIENT
  Sex: Male

DRUGS (3)
  1. TELZIR [Suspect]
     Indication: HIV INFECTION
     Dosage: 1400MG PER DAY
     Route: 048
  2. ANTIRETROVIRAL MEDICATIONS [Suspect]
     Indication: HIV INFECTION
     Route: 065
  3. UNKNOWN [Concomitant]

REACTIONS (3)
  - INCREASED TENDENCY TO BRUISE [None]
  - RASH [None]
  - THROMBOCYTOPENIA [None]
